FAERS Safety Report 7474939-7 (Version None)
Quarter: 2011Q2

REPORT INFORMATION
  Report Type: 
  Country: None (occurrence: None)
  Receive Date: 20110512
  Receipt Date: 20090930
  Transmission Date: 20111010
  Serious: Yes (Death, Other)
  Sender: FDA-Public Use
  Company Number: US-BAYER-200934559NA

PATIENT
  Age: 84 Year
  Sex: Female
  Weight: 49.887 kg

DRUGS (30)
  1. TRASYLOL [Suspect]
     Dosage: 50 ML/HOUR
     Route: 042
     Dates: start: 20000128, end: 20000128
  2. DOBUTAMINE HYDROCHLORIDE [Concomitant]
     Dosage: UNK
     Route: 041
     Dates: start: 20000128, end: 20000128
  3. PLATELETS [Concomitant]
     Dosage: 1 PACK
     Route: 042
     Dates: start: 20000128, end: 20000128
  4. HEPARIN [Concomitant]
     Dosage: 10000 UNITS
     Route: 042
     Dates: start: 20000128, end: 20000128
  5. MANNITOL [Concomitant]
     Dosage: 12.5 GM
     Route: 042
     Dates: start: 20000128, end: 20000128
  6. NIFEREX [CYANOCOBALAMIN,FOLIC ACID,POLYSACCHARIDE-IRON COMPLEX] [Concomitant]
     Dosage: 150 MG
     Route: 048
  7. HYZAAR [Concomitant]
     Dosage: 50-12.5
     Route: 048
  8. K-DUR [Concomitant]
     Dosage: 20 MEQ
     Route: 048
  9. LASIX [Concomitant]
     Dosage: 40 MG
     Route: 048
  10. TRIMETHOBENZAMIDE HCL [Concomitant]
     Dosage: 250 MG
     Route: 048
  11. RED BLOOD CELLS, CONCENTRATED [Concomitant]
     Dosage: 1000 ML
     Route: 042
     Dates: start: 20000128, end: 20000128
  12. TRASYLOL [Suspect]
     Indication: MITRAL VALVE REPLACEMENT
     Dosage: 200 ML PRIME
     Dates: start: 20000128, end: 20000128
  13. LASIX [Concomitant]
     Dosage: 80 MG
     Route: 048
  14. LANOXIN [Concomitant]
     Dosage: 0.125 MG
     Route: 048
  15. PRIMACOR [Concomitant]
     Dosage: 0.5MCG/KG/MIN
     Route: 042
     Dates: start: 20000128, end: 20000128
  16. PLASMALYTE [GLUCOSE,POTASSIUM CHLORIDE] [Concomitant]
     Dosage: 2000 ML
     Route: 042
     Dates: start: 20000128, end: 20000128
  17. WARFARIN [Concomitant]
     Dosage: 1 MG
     Route: 048
  18. COZAAR [Concomitant]
     Dosage: 50 MG
     Route: 048
  19. LANOXIN [Concomitant]
     Dosage: 0.25 MG
     Route: 048
  20. RED BLOOD CELLS, CONCENTRATED [Concomitant]
     Dosage: 1 UNIT
     Route: 042
     Dates: start: 20000128, end: 20000128
  21. CARDIOPLEGIA [Concomitant]
     Dosage: 2500 ML
     Route: 042
     Dates: start: 20000128, end: 20000128
  22. VANCOMYCIN [Concomitant]
     Dosage: 2 GM
     Route: 042
     Dates: start: 20000128, end: 20000128
  23. TRASYLOL [Suspect]
     Indication: CORONARY ARTERY BYPASS
     Dosage: 1 ML TEST DOSE
     Route: 042
     Dates: start: 20000128, end: 20000128
  24. TRASYLOL [Suspect]
     Dosage: 200 ML
     Route: 040
     Dates: start: 20000128, end: 20000128
  25. NITROSTAT [Concomitant]
     Dosage: 0.4 MG
     Route: 060
  26. HYDROCODONE BITARTRATE AND ACETAMINOPHEN [Concomitant]
     Dosage: 2.5 MG /500
     Route: 048
  27. PLASMA [Concomitant]
     Dosage: 4 UNITS
     Dates: start: 20000128, end: 20000128
  28. EPINEPHRINE [Concomitant]
     Dosage: 0.1 MCG/KG/MIN
     Route: 042
     Dates: start: 20000128, end: 20000128
  29. PROTAMINE SULFATE [Concomitant]
     Dosage: UNK
     Route: 042
     Dates: start: 20000128, end: 20000128
  30. INDOCIN [Concomitant]
     Dosage: 50 MG SUPPOSITORY
     Route: 054
     Dates: start: 20000128, end: 20000128

REACTIONS (12)
  - PAIN [None]
  - RENAL IMPAIRMENT [None]
  - EMOTIONAL DISTRESS [None]
  - FEAR [None]
  - RENAL FAILURE [None]
  - ANHEDONIA [None]
  - RENAL INJURY [None]
  - DEATH [None]
  - ANXIETY [None]
  - MULTI-ORGAN FAILURE [None]
  - STRESS [None]
  - INJURY [None]
